FAERS Safety Report 14702142 (Version 2)
Quarter: 2018Q2

REPORT INFORMATION
  Report Type: Spontaneous
  Country: US (occurrence: US)
  Receive Date: 20180401
  Receipt Date: 20180422
  Transmission Date: 20180711
  Serious: No
  Sender: FDA-Public Use
  Company Number: US-JNJFOC-20180325207

PATIENT
  Age: 25 Year
  Sex: Female
  Weight: 57.15 kg

DRUGS (3)
  1. ZYRTEC [Suspect]
     Active Substance: CETIRIZINE HYDROCHLORIDE
     Indication: LACRIMATION INCREASED
     Dosage: 1 TO 2 TABLETS
     Route: 065
     Dates: start: 20180303, end: 20180315
  2. ZYRTEC [Suspect]
     Active Substance: CETIRIZINE HYDROCHLORIDE
     Indication: THROAT IRRITATION
     Dosage: 1 TO 2 TABLETS
     Route: 065
     Dates: start: 20180303, end: 20180315
  3. ZYRTEC [Suspect]
     Active Substance: CETIRIZINE HYDROCHLORIDE
     Indication: RHINORRHOEA
     Dosage: 1 TO 2 TABLETS
     Route: 065
     Dates: start: 20180303, end: 20180315

REACTIONS (4)
  - Overdose [Unknown]
  - Product outer packaging issue [Unknown]
  - Suspected counterfeit product [Unknown]
  - Drug ineffective [Unknown]

NARRATIVE: CASE EVENT DATE: 201803
